FAERS Safety Report 24455167 (Version 2)
Quarter: 2024Q4

REPORT INFORMATION
  Report Type: Report from Study
  Country: US (occurrence: US)
  Receive Date: 20241017
  Receipt Date: 20241018
  Transmission Date: 20250115
  Serious: No
  Sender: ROCHE
  Company Number: US-ROCHE-3484436

PATIENT
  Age: 63 Year
  Sex: Female
  Weight: 73.94 kg

DRUGS (13)
  1. RITUXAN [Suspect]
     Active Substance: RITUXIMAB
     Indication: Rheumatoid arthritis
     Dosage: ON DAY 1 + DAY 14 EVERY 6 MONTHS
     Route: 041
  2. FAMOTIDINE [Concomitant]
     Active Substance: FAMOTIDINE
  3. LEVOCETIRIZINE [Concomitant]
     Active Substance: LEVOCETIRIZINE
  4. TRAZODONE [Concomitant]
     Active Substance: TRAZODONE HYDROCHLORIDE
  5. ALENDRONATE [Concomitant]
     Active Substance: ALENDRONATE SODIUM
  6. MECLIZINE [Concomitant]
     Active Substance: MECLIZINE HYDROCHLORIDE
     Dosage: AS NEEDED
  7. ASPIRIN [Concomitant]
     Active Substance: ASPIRIN
  8. COLLAGEN [Concomitant]
     Active Substance: COLLAGEN
  9. OMEGA 3 [Concomitant]
     Active Substance: CAPSAICIN
  10. SELENIUM [Concomitant]
     Active Substance: SELENIUM
  11. TRAZODONE HCL [Concomitant]
     Active Substance: TRAZODONE HYDROCHLORIDE
  12. TYLENOL PM [Concomitant]
     Active Substance: ACETAMINOPHEN\DIPHENHYDRAMINE
  13. ZEGERID [Concomitant]
     Active Substance: OMEPRAZOLE\SODIUM BICARBONATE

REACTIONS (7)
  - Psoriasis [Unknown]
  - Alopecia [Unknown]
  - Ill-defined disorder [Unknown]
  - Mouth ulceration [Unknown]
  - Deep vein thrombosis [Unknown]
  - Tendon disorder [Unknown]
  - Tendonitis [Unknown]
